FAERS Safety Report 13950619 (Version 1)
Quarter: 2017Q3

REPORT INFORMATION
  Report Type: Spontaneous
  Country: US (occurrence: US)
  Receive Date: 20170908
  Receipt Date: 20170908
  Transmission Date: 20171128
  Serious: Yes (Other)
  Sender: FDA-Public Use
  Company Number: US-ROCHE-1131263

PATIENT
  Sex: Female

DRUGS (10)
  1. ALLOPURINOL. [Concomitant]
     Active Substance: ALLOPURINOL
  2. NIZORAL [Concomitant]
     Active Substance: KETOCONAZOLE
     Route: 065
  3. ZOVIRAX [Concomitant]
     Active Substance: ACYCLOVIR
     Route: 065
  4. DECADRON [Concomitant]
     Active Substance: DEXAMETHASONE
  5. ZYRTEC [Concomitant]
     Active Substance: CETIRIZINE HYDROCHLORIDE
  6. ZINC OXIDE. [Concomitant]
     Active Substance: ZINC OXIDE
  7. RITUXAN [Suspect]
     Active Substance: RITUXIMAB
     Indication: CHRONIC LYMPHOCYTIC LEUKAEMIA
     Route: 065
  8. FLUDARABINE [Concomitant]
     Active Substance: FLUDARABINE PHOSPHATE
  9. NOVANTRONE [Concomitant]
     Active Substance: MITOXANTRONE HYDROCHLORIDE
  10. DURICEF [Concomitant]
     Active Substance: CEFADROXIL
     Route: 065

REACTIONS (7)
  - Therapy partial responder [Unknown]
  - Herpes virus infection [Unknown]
  - Decreased appetite [Unknown]
  - Weight decreased [Unknown]
  - Serum sickness [Recovering/Resolving]
  - Rash erythematous [Unknown]
  - Pancytopenia [Unknown]
